FAERS Safety Report 10062248 (Version 1)
Quarter: 2014Q2

REPORT INFORMATION
  Report Type: Spontaneous
  Country: AU (occurrence: AU)
  Receive Date: 20140407
  Receipt Date: 20140407
  Transmission Date: 20141212
  Serious: Yes (Death, Other)
  Sender: FDA-Public Use
  Company Number: AU-MYLANLABS-2014S1007047

PATIENT
  Age: 85 Year
  Sex: Female

DRUGS (2)
  1. WARFARIN [Suspect]
     Route: 048
  2. ENOXAPARIN SODIUM [Concomitant]
     Route: 065

REACTIONS (3)
  - Renal failure [Fatal]
  - Fat embolism [Unknown]
  - Blue toe syndrome [Unknown]
